FAERS Safety Report 7055538-8 (Version None)
Quarter: 2010Q4

REPORT INFORMATION
  Report Type: 
  Country: None (occurrence: None)
  Receive Date: 20101021
  Receipt Date: 20101020
  Transmission Date: 20110411
  Serious: Yes (Life-Threatening)
  Sender: FDA-Public Use
  Company Number: JP-AMGEN LTD.-JPNCT2010000405

PATIENT

DRUGS (12)
  1. PANITUMUMAB [Suspect]
     Indication: COLORECTAL CANCER
     Dosage: 6 MG/KG, Q2WK
     Route: 041
     Dates: start: 20100628, end: 20100712
  2. IRINOTECAN HYDROCHLORIDE [Suspect]
     Indication: COLORECTAL CANCER
     Dosage: 150 MG/M2, Q2WK
     Route: 041
     Dates: start: 20100628
  3. FLUOROURACIL [Suspect]
     Indication: COLORECTAL CANCER
     Dosage: 400 MG/M2, Q2WK
     Route: 040
     Dates: start: 20100628
  4. FLUOROURACIL [Suspect]
     Route: 041
     Dates: start: 20100628
  5. LEUCOVORIN CALCIUM [Suspect]
     Indication: COLORECTAL CANCER
     Route: 041
     Dates: start: 20100628
  6. BIO THREE [Concomitant]
     Dosage: UNK
     Route: 048
  7. MIYA-BM [Concomitant]
     Dosage: UNK
     Route: 048
  8. LOPEMIN [Concomitant]
     Dosage: UNK
     Route: 048
  9. KENALOG [Concomitant]
     Dosage: UNK
     Route: 048
  10. MYSER [Concomitant]
     Dosage: UNK
     Route: 062
  11. LOCOID CREAM [Concomitant]
     Dosage: UNK
     Route: 062
  12. GRAN [Concomitant]
     Dosage: UNK
     Route: 042

REACTIONS (3)
  - DERMATITIS ACNEIFORM [None]
  - FEBRILE NEUTROPENIA [None]
  - STOMATITIS [None]
